FAERS Safety Report 23861093 (Version 3)
Quarter: 2024Q4

REPORT INFORMATION
  Report Type: Report from Study
  Country: GB (occurrence: GB)
  Receive Date: 20240516
  Receipt Date: 20241114
  Transmission Date: 20250115
  Serious: No
  Sender: CELLTRION
  Company Number: GB-CELLTRION INC.-2024GB010792

PATIENT

DRUGS (1)
  1. INFLIXIMAB-DYYB [Suspect]
     Active Substance: INFLIXIMAB-DYYB
     Indication: Crohn^s disease
     Dosage: UNK
     Route: 058
     Dates: start: 20240408

REACTIONS (2)
  - Condition aggravated [Unknown]
  - Therapy cessation [Recovered/Resolved]

NARRATIVE: CASE EVENT DATE: 20240508
